FAERS Safety Report 19074989 (Version 3)
Quarter: 2021Q2

REPORT INFORMATION
  Report Type: Spontaneous
  Country: GB (occurrence: GB)
  Receive Date: 20210330
  Receipt Date: 20210526
  Transmission Date: 20210717
  Serious: Yes (Hospitalization, Other)
  Sender: FDA-Public Use
  Company Number: GB-ASTRAZENECA-2021A184546

PATIENT
  Age: 78 Year
  Sex: Female
  Weight: 83.4 kg

DRUGS (5)
  1. IMFINZI [Suspect]
     Active Substance: DURVALUMAB
     Indication: NON-SMALL CELL LUNG CANCER STAGE III
     Dosage: 2 WEEKLY
     Route: 042
     Dates: start: 20210126, end: 20210208
  2. IMFINZI [Suspect]
     Active Substance: DURVALUMAB
     Indication: ADJUVANT THERAPY
     Dosage: 2 WEEKLY
     Route: 042
     Dates: start: 20210126, end: 20210208
  3. PREDNISOLONE. [Concomitant]
     Active Substance: PREDNISOLONE
     Dosage: REDUCING DOSE
     Route: 048
  4. AMITRIPTYLINE [Concomitant]
     Active Substance: AMITRIPTYLINE
     Route: 048
  5. LEVOTHYROXINE. [Concomitant]
     Active Substance: LEVOTHYROXINE
     Route: 048

REACTIONS (8)
  - Colitis [Recovered/Resolved]
  - Diarrhoea [Recovered/Resolved]
  - Nausea [Unknown]
  - Cough [Unknown]
  - Vomiting [Unknown]
  - Dyspnoea [Unknown]
  - Pneumonitis [Unknown]
  - Rash [Unknown]

NARRATIVE: CASE EVENT DATE: 20210208
